FAERS Safety Report 7926744-2 (Version None)
Quarter: 2011Q4

REPORT INFORMATION
  Report Type: 
  Country: None (occurrence: None)
  Receive Date: 20111118
  Receipt Date: 20111111
  Transmission Date: 20120403
  Serious: Yes (Hospitalization)
  Sender: FDA-Public Use
  Company Number: DK-JNJFOC-20111104691

PATIENT
  Sex: Male
  Weight: 80 kg

DRUGS (31)
  1. PREDNISONE TAB [Suspect]
     Route: 048
     Dates: start: 20110803
  2. VINCRISTINE [Suspect]
     Route: 042
     Dates: start: 20110803
  3. MORPHINE [Concomitant]
     Indication: PAIN
     Route: 048
  4. SULFAMETHOXAZOL AND TRIMETHOPRIM [Concomitant]
     Indication: PROPHYLAXIS
     Route: 048
     Dates: start: 20110628
  5. DOXORUBICIN HCL [Suspect]
     Route: 042
     Dates: start: 20110426
  6. CYCLOPHOSPHAMIDE [Suspect]
     Route: 042
     Dates: start: 20110426
  7. RITUXIMAB [Suspect]
     Indication: DIFFUSE LARGE B-CELL LYMPHOMA
     Route: 042
     Dates: start: 20110503
  8. CYCLOPHOSPHAMIDE [Suspect]
     Indication: DIFFUSE LARGE B-CELL LYMPHOMA
     Route: 042
     Dates: start: 20110803
  9. CYCLOPHOSPHAMIDE [Suspect]
     Route: 042
     Dates: start: 20110628
  10. NEUPOGEN [Suspect]
     Indication: DIFFUSE LARGE B-CELL LYMPHOMA
     Route: 058
     Dates: start: 20110427
  11. RITUXIMAB [Suspect]
     Route: 042
     Dates: start: 20110702
  12. RITUXIMAB [Suspect]
     Route: 042
     Dates: start: 20110426
  13. AMLODIPINE [Concomitant]
     Indication: HYPERTENSION
     Route: 048
  14. LANSOPRAZOLE [Concomitant]
     Indication: PROPHYLAXIS
     Route: 048
  15. PREDNISONE TAB [Suspect]
     Indication: DIFFUSE LARGE B-CELL LYMPHOMA
     Route: 048
     Dates: start: 20110426
  16. RITUXIMAB [Suspect]
     Route: 042
     Dates: start: 20110803
  17. ALLOPURINOL [Concomitant]
     Indication: PROPHYLAXIS
     Route: 048
     Dates: start: 20110412, end: 20110708
  18. MOVIPREP [Concomitant]
     Indication: CONSTIPATION
     Route: 065
  19. NEUPOGEN [Suspect]
     Route: 058
     Dates: start: 20110629
  20. VINCRISTINE [Suspect]
     Indication: DIFFUSE LARGE B-CELL LYMPHOMA
     Route: 042
     Dates: start: 20110426
  21. VINCRISTINE [Suspect]
     Route: 042
     Dates: start: 20110628
  22. DOXORUBICIN HCL [Suspect]
     Indication: DIFFUSE LARGE B-CELL LYMPHOMA
     Route: 042
     Dates: start: 20110628
  23. DOXORUBICIN HCL [Suspect]
     Route: 042
     Dates: start: 20110803
  24. ACYCLOVIR [Concomitant]
     Indication: PROPHYLAXIS
     Route: 048
     Dates: start: 20110412
  25. FUROSEMIDE [Concomitant]
     Indication: POLYURIA
     Route: 048
  26. RITUXIMAB [Suspect]
     Route: 042
     Dates: start: 20110628
  27. ENOXAPARIN SODIUM [Concomitant]
     Indication: PAIN
     Route: 058
     Dates: start: 20110826
  28. NEUPOGEN [Suspect]
     Route: 058
     Dates: start: 20110804
  29. PREDNISONE TAB [Suspect]
     Route: 048
     Dates: start: 20110628
  30. LACTULOSE [Concomitant]
     Indication: CONSTIPATION
     Route: 048
  31. SENNOSIDE [Concomitant]
     Indication: PRODUCT USED FOR UNKNOWN INDICATION
     Route: 065

REACTIONS (5)
  - MUSCLE RUPTURE [None]
  - FEBRILE NEUTROPENIA [None]
  - PULMONARY EMBOLISM [None]
  - PNEUMONIA [None]
  - PYREXIA [None]
